FAERS Safety Report 14349912 (Version 1)
Quarter: 2018Q1

REPORT INFORMATION
  Report Type: Spontaneous
  Country: US (occurrence: US)
  Receive Date: 20180104
  Receipt Date: 20180104
  Transmission Date: 20180509
  Serious: Yes (Other)
  Sender: FDA-Public Use
  Company Number: US-BEH-2017086364

PATIENT
  Age: 47 Year
  Sex: Female
  Weight: 113.38 kg

DRUGS (6)
  1. ALLEGRA-D [Concomitant]
     Active Substance: FEXOFENADINE\PSEUDOEPHEDRINE
  2. VENTOLIN [Concomitant]
     Active Substance: ALBUTEROL SULFATE
  3. FLUTICASONE FUROATE [Concomitant]
     Active Substance: FLUTICASONE FUROATE
  4. AMBIEN [Concomitant]
     Active Substance: ZOLPIDEM TARTRATE
  5. HIZENTRA [Suspect]
     Active Substance: HUMAN IMMUNOGLOBULIN G
     Indication: SELECTIVE IGG SUBCLASS DEFICIENCY
     Dosage: 10 G, UNK
     Route: 058
  6. HIZENTRA [Suspect]
     Active Substance: HUMAN IMMUNOGLOBULIN G
     Indication: IMMUNODEFICIENCY

REACTIONS (3)
  - Corneal oedema [Unknown]
  - Nasopharyngitis [Unknown]
  - Vision blurred [Unknown]

NARRATIVE: CASE EVENT DATE: 201712
